FAERS Safety Report 5142645-X (Version None)
Quarter: 2006Q4

REPORT INFORMATION
  Report Type: 
  Country: None (occurrence: None)
  Receive Date: 20061102
  Receipt Date: 20041015
  Transmission Date: 20070319
  Serious: Yes (Hospitalization)
  Sender: FDA-Public Use
  Company Number: JP-BOEHRINGER INGELHEIM PHARMACEUTICALS, INC.-2004-BP-10792NB

PATIENT
  Sex: Male

DRUGS (15)
  1. MICARDIS [Suspect]
     Indication: HYPERTENSION
     Route: 048
     Dates: start: 20041002, end: 20041014
  2. JUVELAN [Concomitant]
     Indication: MUSCULAR WEAKNESS
     Route: 048
  3. RENIVACE [Concomitant]
     Indication: HYPERTENSION
     Route: 048
  4. FURSULTIAMINE [Concomitant]
     Indication: DEPRESSION
     Route: 048
  5. GLIMICRON [Concomitant]
     Indication: DIABETES MELLITUS
     Route: 048
  6. MUCOSTA [Concomitant]
     Indication: GASTRITIS
     Route: 048
  7. HACHIMI-JIO-GAN [Concomitant]
     Indication: MUSCULAR WEAKNESS
     Route: 048
  8. TOUGHMAC E [Concomitant]
     Indication: GASTRITIS
     Route: 048
  9. CYANOCOBALAMIN [Concomitant]
     Indication: HYPERLIPIDAEMIA
     Route: 048
  10. AMOXAN [Concomitant]
     Indication: DEPRESSION
     Route: 048
  11. ALMARL [Concomitant]
     Indication: HYPERTENSION
     Route: 048
  12. PANVITAN [Concomitant]
     Indication: MUSCULAR WEAKNESS
     Route: 048
  13. LUDIOMIL [Concomitant]
     Indication: DEPRESSION
     Route: 048
  14. ROHYPNOL [Concomitant]
     Indication: DEPRESSION
     Route: 048
  15. SAIKO-KA-RYUKOTSU-BOREI-TO [Concomitant]
     Indication: MUSCULAR WEAKNESS
     Route: 048

REACTIONS (2)
  - ASTHENIA [None]
  - BLOOD CREATINE PHOSPHOKINASE INCREASED [None]
